FAERS Safety Report 5763230-2 (Version None)
Quarter: 2008Q2

REPORT INFORMATION
  Report Type: 
  Country: None (occurrence: None)
  Receive Date: 20080609
  Receipt Date: 20080530
  Transmission Date: 20081010
  Serious: Yes (Other)
  Sender: FDA-Public Use
  Company Number: CO-PFIZER INC-2008047472

PATIENT
  Sex: Female

DRUGS (2)
  1. NORVASC [Suspect]
     Indication: HYPERTENSION
     Route: 048
  2. THYROXIN [Concomitant]

REACTIONS (4)
  - FACE OEDEMA [None]
  - FLUID RETENTION [None]
  - MUSCLE SPASMS [None]
  - OEDEMA PERIPHERAL [None]
